FAERS Safety Report 24642078 (Version 1)
Quarter: 2024Q4

REPORT INFORMATION
  Report Type: Spontaneous
  Country: US (occurrence: None)
  Receive Date: 20241119
  Receipt Date: 20241119
  Transmission Date: 20250115
  Serious: No
  Sender: Public
  Company Number: None

PATIENT
  Sex: 0

DRUGS (1)
  1. BIAXIN [Suspect]
     Active Substance: CLARITHROMYCIN

REACTIONS (3)
  - Helicobacter test positive [None]
  - Drug resistance [None]
  - Drug ineffective [None]
